FAERS Safety Report 21498683 (Version 1)
Quarter: 2022Q4

REPORT INFORMATION
  Report Type: Spontaneous
  Country: CN (occurrence: CN)
  Receive Date: 20221024
  Receipt Date: 20221024
  Transmission Date: 20230113
  Serious: Yes (Other)
  Sender: FDA-Public Use
  Company Number: CN-NOVARTISPH-NVSC2022CN237509

PATIENT
  Age: 26 Year
  Sex: Male

DRUGS (2)
  1. OXCARBAZEPINE [Suspect]
     Active Substance: OXCARBAZEPINE
     Indication: Mood swings
     Dosage: 0.30 G, BID
     Route: 048
     Dates: start: 20220808, end: 20221017
  2. CLOZAPINE [Concomitant]
     Active Substance: CLOZAPINE
     Indication: Mood swings
     Dosage: 25 MG, QD
     Route: 048
     Dates: start: 20220818, end: 20221017

REACTIONS (2)
  - Hyponatraemia [Not Recovered/Not Resolved]
  - Blood chloride decreased [Not Recovered/Not Resolved]

NARRATIVE: CASE EVENT DATE: 20220927
